FAERS Safety Report 11481412 (Version 4)
Quarter: 2016Q1

REPORT INFORMATION
  Report Type: Spontaneous
  Country: JP (occurrence: JP)
  Receive Date: 20150909
  Receipt Date: 20160114
  Transmission Date: 20160525
  Serious: Yes (Other)
  Sender: FDA-Public Use
  Company Number: JP-GILEAD-2015-0171374

PATIENT
  Age: 67 Year
  Sex: Female

DRUGS (3)
  1. VIREAD [Suspect]
     Active Substance: TENOFOVIR DISOPROXIL FUMARATE
     Indication: ACUTE HEPATITIS B
     Dosage: 300 MG, QD
     Route: 048
     Dates: start: 20150807, end: 20150826
  2. BARACLUDE [Concomitant]
     Active Substance: ENTECAVIR
     Dosage: UNK
  3. LACTULOSE. [Concomitant]
     Active Substance: LACTULOSE

REACTIONS (6)
  - Coma hepatic [Unknown]
  - Depressed level of consciousness [Unknown]
  - Platelet count decreased [Unknown]
  - Antithrombin III decreased [Unknown]
  - Disseminated intravascular coagulation [Unknown]
  - Fibrin degradation products increased [Unknown]
